FAERS Safety Report 7808853-1 (Version None)
Quarter: 2011Q4

REPORT INFORMATION
  Report Type: 
  Country: None (occurrence: None)
  Receive Date: 20111006
  Receipt Date: 20110923
  Transmission Date: 20120403
  Serious: Yes (Other)
  Sender: FDA-Public Use
  Company Number: HRA-CDB20110082

PATIENT
  Age: 35 Year
  Sex: Female

DRUGS (2)
  1. ELLAONE (ULIPRISTAL ACETATE) [Suspect]
     Indication: POST COITAL CONTRACEPTION
     Dates: start: 20110906, end: 20110906
  2. IBUPROFEN [Concomitant]

REACTIONS (3)
  - PREGNANCY [None]
  - MATERNAL EXPOSURE DURING PREGNANCY [None]
  - HIGH RISK SEXUAL BEHAVIOUR [None]
